FAERS Safety Report 10062957 (Version 1)
Quarter: 2014Q2

REPORT INFORMATION
  Report Type: Spontaneous
  Country: US (occurrence: US)
  Receive Date: 20140407
  Receipt Date: 20140407
  Transmission Date: 20141212
  Serious: No
  Sender: FDA-Public Use
  Company Number: US-BAYER-2014-042985

PATIENT
  Age: 82 Year
  Sex: Female
  Weight: 61 kg

DRUGS (1)
  1. ALEVE CAPLET [Suspect]
     Indication: SCIATICA
     Dosage: UNK, QD
     Route: 048

REACTIONS (3)
  - Medication error [None]
  - Dizziness [None]
  - Extra dose administered [None]
